FAERS Safety Report 6642870-2 (Version None)
Quarter: 2010Q1

REPORT INFORMATION
  Report Type: 
  Country: None (occurrence: None)
  Receive Date: 20100319
  Receipt Date: 20100309
  Transmission Date: 20100710
  Serious: Yes (Other)
  Sender: FDA-Public Use
  Company Number: US-AMGEN-QUU399056

PATIENT
  Sex: Male

DRUGS (4)
  1. ENBREL [Suspect]
     Indication: RHEUMATOID ARTHRITIS
     Route: 058
  2. CIPRO [Concomitant]
  3. NIASPAN [Concomitant]
  4. PREDNISONE [Concomitant]

REACTIONS (1)
  - RENAL FAILURE [None]
